FAERS Safety Report 6830574-2 (Version None)
Quarter: 2010Q3

REPORT INFORMATION
  Report Type: 
  Country: None (occurrence: None)
  Receive Date: 20100707
  Receipt Date: 20100629
  Transmission Date: 20110219
  Serious: Yes (Hospitalization, Other)
  Sender: FDA-Public Use
  Company Number: 2010SP036528

PATIENT
  Sex: Male

DRUGS (1)
  1. ZEGERID [Suspect]
     Indication: DYSPEPSIA
     Dosage: PO
     Route: 048

REACTIONS (2)
  - ASTHENIA [None]
  - FATIGUE [None]
